FAERS Safety Report 9502788 (Version 1)
Quarter: 2013Q3

REPORT INFORMATION
  Report Type: Report from Study
  Country: CA (occurrence: CA)
  Receive Date: 20130906
  Receipt Date: 20130906
  Transmission Date: 20140515
  Serious: Yes (Other)
  Sender: FDA-Public Use
  Company Number: CA-JNJFOC-20130902071

PATIENT
  Age: 60 Year
  Sex: Female
  Weight: 124.9 kg

DRUGS (10)
  1. REMICADE [Suspect]
     Indication: CROHN^S DISEASE
     Route: 042
  2. REMICADE [Suspect]
     Indication: CROHN^S DISEASE
     Route: 042
     Dates: start: 20130830
  3. AZATHIOPRINE [Concomitant]
     Route: 065
  4. VENLAFAXINE [Concomitant]
     Route: 065
  5. ESTRACE [Concomitant]
     Route: 065
  6. AMLODIPINE [Concomitant]
     Route: 065
  7. LASIX [Concomitant]
     Route: 065
  8. SYNTHROID [Concomitant]
     Route: 065
  9. COVERSYL [Concomitant]
     Route: 065
  10. HYDROMORPHONE [Concomitant]
     Route: 065

REACTIONS (1)
  - Central venous catheterisation [Recovered/Resolved]
